FAERS Safety Report 8771326 (Version 1)
Quarter: 2012Q4

REPORT INFORMATION
  Report Type: 
  Country: US (occurrence: US)
  Receive Date: 20120906
  Receipt Date: 20120906
  Transmission Date: 20130627
  Serious: Yes (Hospitalization, Congenital Anomaly)
  Sender: FDA-Public Use
  Company Number: US-GLAXOSMITHKLINE-A0756635A

PATIENT
  Age: 0 Year
  Sex: Female
  Weight: 2.7 kg

DRUGS (3)
  1. PAROXETINE [Suspect]
     Indication: DEPRESSION
     Route: 064
     Dates: start: 200601, end: 200602
  2. MOTRIN [Concomitant]
     Route: 064
  3. PRENATAL VITAMINS [Concomitant]
     Route: 064

REACTIONS (8)
  - Atrial septal defect [Unknown]
  - Arteriovenous malformation [Unknown]
  - Atrial septal defect [Unknown]
  - Cardiac failure [Unknown]
  - Ventricular septal defect [Unknown]
  - Hypoplastic left heart syndrome [Unknown]
  - Anterior displaced anus [Unknown]
  - Foetal exposure during pregnancy [Unknown]
